FAERS Safety Report 12652788 (Version 4)
Quarter: 2016Q3

REPORT INFORMATION
  Report Type: Spontaneous
  Country: US (occurrence: US)
  Receive Date: 20160815
  Receipt Date: 20160906
  Transmission Date: 20161109
  Serious: Yes (Death, Other)
  Sender: FDA-Public Use
  Company Number: US-JAZZ-2016-US-014988

PATIENT
  Age: 67 Year
  Sex: Female

DRUGS (17)
  1. PRIALT [Suspect]
     Active Substance: ZICONOTIDE ACETATE
     Indication: PHANTOM PAIN
     Dosage: 0.139 ?G, QH
     Route: 037
     Dates: start: 20160405
  2. LASIX [Concomitant]
     Active Substance: FUROSEMIDE
  3. ZANAFLEX [Concomitant]
     Active Substance: TIZANIDINE HYDROCHLORIDE
  4. QUETIAPINE FUMARATE. [Suspect]
     Active Substance: QUETIAPINE FUMARATE
     Route: 048
  5. KLOR-CON [Concomitant]
     Active Substance: POTASSIUM CHLORIDE
  6. PERCOCET [Concomitant]
     Active Substance: ACETAMINOPHEN\OXYCODONE HYDROCHLORIDE
     Dosage: 1 TAB Q 6 HOUR
     Route: 048
  7. BUPIVACAINE. [Suspect]
     Active Substance: BUPIVACAINE
     Indication: PAIN
     Dosage: 0.086 MG, QH
     Route: 037
     Dates: start: 20160315, end: 20160405
  8. GABAPENTIN. [Concomitant]
     Active Substance: GABAPENTIN
     Dosage: 600 MG, 2 TABS, Q 8 HOUR
  9. PRIALT [Suspect]
     Active Substance: ZICONOTIDE ACETATE
     Indication: PAIN
     Dosage: 0.121 ?G, QH
     Route: 037
     Dates: start: 20160315, end: 20160405
  10. BUPIVACAINE. [Suspect]
     Active Substance: BUPIVACAINE
     Dosage: 0.069 MG, QH
     Route: 037
     Dates: start: 20160512
  11. TOPIRAMATE. [Suspect]
     Active Substance: TOPIRAMATE
     Route: 048
  12. CYMBALTA [Suspect]
     Active Substance: DULOXETINE HYDROCHLORIDE
     Dosage: 60 MG, QD
     Route: 048
  13. TOPAMAX [Concomitant]
     Active Substance: TOPIRAMATE
  14. BUSPIRONE HCL [Concomitant]
     Active Substance: BUSPIRONE HYDROCHLORIDE
  15. BUPIVACAINE. [Suspect]
     Active Substance: BUPIVACAINE
     Indication: PHANTOM PAIN
     Dosage: 0.099 MG, QH
     Route: 037
     Dates: start: 20160405, end: 20160512
  16. OXYCODONE [Suspect]
     Active Substance: OXYCODONE
     Dosage: 1 TAB EVERY 6 HOURS
     Route: 048
  17. PANTOPRAZOLE [Concomitant]
     Active Substance: PANTOPRAZOLE SODIUM

REACTIONS (2)
  - Overdose [Fatal]
  - Device issue [Unknown]

NARRATIVE: CASE EVENT DATE: 20160602
